FAERS Safety Report 21700002 (Version 2)
Quarter: 2022Q4

REPORT INFORMATION
  Report Type: Report from Study
  Country: MX (occurrence: MX)
  Receive Date: 20221208
  Receipt Date: 20221215
  Transmission Date: 20230113
  Serious: Yes (Death, Hospitalization)
  Sender: FDA-Public Use
  Company Number: MX-002147023-NVSC2022MX284532

PATIENT
  Age: 75 Year
  Sex: Male
  Weight: 62 kg

DRUGS (1)
  1. CYCLOSPORINE [Suspect]
     Active Substance: CYCLOSPORINE
     Indication: Myelodysplastic syndrome
     Dosage: 5 ML (100 MG) QD
     Route: 048
     Dates: start: 202204, end: 20221007

REACTIONS (4)
  - Cerebrovascular accident [Fatal]
  - Dementia [Fatal]
  - Myelodysplastic syndrome [Fatal]
  - Off label use [Recovered/Resolved]

NARRATIVE: CASE EVENT DATE: 20220801
